FAERS Safety Report 9227737 (Version 1)
Quarter: 2013Q2

REPORT INFORMATION
  Report Type: Report from Study
  Country: CA (occurrence: CA)
  Receive Date: 20130412
  Receipt Date: 20130412
  Transmission Date: 20140414
  Serious: Yes (Hospitalization)
  Sender: FDA-Public Use
  Company Number: CA-JNJFOC-20130403313

PATIENT
  Age: 21 Year
  Sex: Male
  Weight: 65.4 kg

DRUGS (3)
  1. REMICADE [Suspect]
     Indication: COLITIS ULCERATIVE
     Dosage: THIRD INFUSION
     Route: 042
     Dates: start: 20130402
  2. REMICADE [Suspect]
     Indication: COLITIS ULCERATIVE
     Route: 042
     Dates: start: 20130219
  3. IMURAN [Concomitant]
     Route: 048

REACTIONS (1)
  - Blood test abnormal [Recovering/Resolving]
